FAERS Safety Report 4818526-5 (Version None)
Quarter: 2005Q4

REPORT INFORMATION
  Report Type: 
  Country: None (occurrence: None)
  Receive Date: 20051031
  Receipt Date: 20051021
  Transmission Date: 20060501
  Serious: Yes (Death)
  Sender: FDA-Public Use
  Company Number: 2005140886

PATIENT
  Age: 93 Year
  Sex: Male
  Weight: 58.9676 kg

DRUGS (5)
  1. LOMOTIL [Suspect]
     Indication: DIARRHOEA
     Dosage: 5 MG (2.5 MG, BID)
     Dates: start: 20050901
  2. CARDURA [Concomitant]
  3. METOPROLOL TARTRATE [Concomitant]
  4. CAPTOPRIL [Concomitant]
  5. LANOXIN [Concomitant]

REACTIONS (1)
  - DRUG INEFFECTIVE [None]
